FAERS Safety Report 16541437 (Version 1)
Quarter: 2019Q3

REPORT INFORMATION
  Report Type: Spontaneous
  Country: US (occurrence: US)
  Receive Date: 20190708
  Receipt Date: 20190708
  Transmission Date: 20191004
  Serious: No
  Sender: FDA-Public Use
  Company Number: US-AVEDRO-AVE-2019-0166-AE

PATIENT

DRUGS (7)
  1. PHOTREXA [Suspect]
     Active Substance: RIBOFLAVIN 5^-PHOSPHATE SODIUM
     Indication: KERATOCONUS
     Dosage: 2 DROPS EVERY 5 TO 10 SECONDS FOR APPROXIMATELY 3 TO 4 MINUTES
     Route: 047
     Dates: start: 20190515, end: 20190515
  2. TETRACAINE. [Concomitant]
     Active Substance: TETRACAINE
     Indication: PRODUCT USED FOR UNKNOWN INDICATION
     Route: 061
     Dates: start: 20190515, end: 20190515
  3. PHOTREXA [Suspect]
     Active Substance: RIBOFLAVIN 5^-PHOSPHATE SODIUM
     Dosage: 2 TO 3 DROPS EVERY 10 TO 15 SECONDS FOR APPROXIMATELY 7 MINUTES (WAS NOT TIMED EXACTLY)
     Route: 047
     Dates: start: 20190515, end: 20190515
  4. KXL SYSTEM [Suspect]
     Active Substance: DEVICE
     Indication: KERATOCONUS
     Route: 047
     Dates: start: 20190515, end: 20190515
  5. PHOTREXA VISCOUS [Suspect]
     Active Substance: RIBOFLAVIN 5^-PHOSPHATE SODIUM
     Dosage: ^1-2 DROPS TO BE SURE IT GOT IN^ EVERY 2 MINUTES FOR AN ADDITIONAL APPROXIMATELY 12 MINUTES
     Route: 047
     Dates: start: 20190515, end: 20190515
  6. PHOTREXA VISCOUS [Suspect]
     Active Substance: RIBOFLAVIN 5^-PHOSPHATE SODIUM
     Indication: KERATOCONUS
     Dosage: 1 DROP EVERY 2 MINUTES FOR 30 MINUTES
     Route: 047
     Dates: start: 20190515, end: 20190515
  7. PHOTREXA VISCOUS [Suspect]
     Active Substance: RIBOFLAVIN 5^-PHOSPHATE SODIUM
     Dosage: 1 DROP EVERY 2 MINUTES FOR [ULTRAVIOLET] TREATMENT PHASE
     Route: 047
     Dates: start: 20190515, end: 20190515

REACTIONS (2)
  - Inappropriate schedule of product administration [Unknown]
  - No adverse event [Unknown]

NARRATIVE: CASE EVENT DATE: 20190515
